FAERS Safety Report 8501097-X (Version None)
Quarter: 2012Q3

REPORT INFORMATION
  Report Type: 
  Country: None (occurrence: None)
  Receive Date: 20120710
  Receipt Date: 20120702
  Transmission Date: 20120928
  Serious: Yes (Hospitalization, Other)
  Sender: FDA-Public Use
  Company Number: US-ELI_LILLY_AND_COMPANY-US201006006010

PATIENT
  Sex: Male

DRUGS (4)
  1. CIALIS [Suspect]
     Indication: ERECTILE DYSFUNCTION
     Dosage: 5 MG, AS NEEDED
     Route: 048
     Dates: start: 20100227
  2. CIALIS [Suspect]
     Dosage: 20 MG, PRN
     Dates: start: 20120501
  3. HUMULIN 70/30 [Suspect]
     Dosage: 30 UG, EACH EVENING
  4. HUMULIN 70/30 [Suspect]
     Indication: DIABETES MELLITUS
     Dosage: 40 UG, EACH MORNING

REACTIONS (4)
  - DRUG INEFFECTIVE [None]
  - PROSTATECTOMY [None]
  - PROSTATE CANCER [None]
  - BLOOD GLUCOSE INCREASED [None]
